FAERS Safety Report 23419410 (Version 1)
Quarter: 2024Q1

REPORT INFORMATION
  Report Type: Spontaneous
  Country: DE (occurrence: DE)
  Receive Date: 20240118
  Receipt Date: 20240118
  Transmission Date: 20240410
  Serious: Yes (Death, Other)
  Sender: FDA-Public Use
  Company Number: None

PATIENT
  Age: 47 Year
  Sex: Female

DRUGS (18)
  1. BISOPROLOL [Suspect]
     Active Substance: BISOPROLOL\BISOPROLOL FUMARATE
  2. BISOPROLOL [Suspect]
     Active Substance: BISOPROLOL\BISOPROLOL FUMARATE
     Indication: Product used for unknown indication
  3. QUETIAPINE [Interacting]
     Active Substance: QUETIAPINE
     Indication: Stress
     Dosage: DIFFERENT DOSAGES
  4. QUETIAPINE [Interacting]
     Active Substance: QUETIAPINE
     Indication: Sleep disorder
     Dosage: DIFFERENT DOSAGES
  5. MIRTAZAPINE [Interacting]
     Active Substance: MIRTAZAPINE
     Indication: Sleep disorder
  6. MIRTAZAPINE [Interacting]
     Active Substance: MIRTAZAPINE
     Indication: Stress
  7. LAVENDER OIL [Interacting]
     Active Substance: LAVENDER OIL
     Indication: Sleep disorder
  8. LAVENDER OIL [Interacting]
     Active Substance: LAVENDER OIL
     Indication: Stress
  9. RISPERIDONE [Interacting]
     Active Substance: RISPERIDONE
     Indication: Sleep disorder
  10. RISPERIDONE [Interacting]
     Active Substance: RISPERIDONE
     Indication: Stress
  11. CIPRALEX [Interacting]
     Active Substance: ESCITALOPRAM OXALATE
     Indication: Sleep disorder
  12. CIPRALEX [Interacting]
     Active Substance: ESCITALOPRAM OXALATE
     Indication: Stress
  13. SIMVASTATIN [Interacting]
     Active Substance: SIMVASTATIN
     Indication: Sleep disorder
  14. SIMVASTATIN [Interacting]
     Active Substance: SIMVASTATIN
     Indication: Stress
  15. RISPERIDONE [Interacting]
     Active Substance: RISPERIDONE
     Indication: Sleep disorder
  16. RISPERIDONE [Interacting]
     Active Substance: RISPERIDONE
     Indication: Stress
  17. SIMVASTATIN [Interacting]
     Active Substance: SIMVASTATIN
     Indication: Sleep disorder
  18. SIMVASTATIN [Interacting]
     Active Substance: SIMVASTATIN
     Indication: Stress

REACTIONS (11)
  - Completed suicide [Fatal]
  - Gait disturbance [Not Recovered/Not Resolved]
  - Vision blurred [Not Recovered/Not Resolved]
  - Dyskinesia [Not Recovered/Not Resolved]
  - General physical health deterioration [Not Recovered/Not Resolved]
  - Dizziness [Not Recovered/Not Resolved]
  - Thinking abnormal [Not Recovered/Not Resolved]
  - Emotional poverty [Not Recovered/Not Resolved]
  - Tremor [Not Recovered/Not Resolved]
  - Drug interaction [Not Recovered/Not Resolved]
  - Product use in unapproved indication [Unknown]

NARRATIVE: CASE EVENT DATE: 20220929
